FAERS Safety Report 5958142-5 (Version None)
Quarter: 2008Q4

REPORT INFORMATION
  Report Type: 
  Country: None (occurrence: None)
  Receive Date: 20081117
  Receipt Date: 20081117
  Transmission Date: 20090506
  Serious: Yes (Other)
  Sender: FDA-Public Use
  Company Number: None

PATIENT
  Age: 53 Year
  Sex: Female
  Weight: 83.9154 kg

DRUGS (1)
  1. OMEPRAZOLE DR TABLETS 20MG DEXEL LTD. [Suspect]
     Indication: GASTROOESOPHAGEAL REFLUX DISEASE
     Dosage: 1 TABLET TWICE DAILY PO
     Route: 048
     Dates: start: 20080817, end: 20080912

REACTIONS (6)
  - ANOREXIA [None]
  - DRY MOUTH [None]
  - THIRST [None]
  - URTICARIA [None]
  - VERTIGO [None]
  - WEIGHT DECREASED [None]
